FAERS Safety Report 23082755 (Version 1)
Quarter: 2023Q4

REPORT INFORMATION
  Report Type: Other
  Country: IN (occurrence: None)
  Receive Date: 20231019
  Receipt Date: 20231019
  Transmission Date: 20240109
  Serious: Yes (Other)
  Sender: FDA-Public Use
  Company Number: IN-ROCHE-3438323

PATIENT
  Age: 56 Year
  Sex: Female

DRUGS (11)
  1. GLOFITAMAB [Suspect]
     Active Substance: GLOFITAMAB
     Indication: Diffuse large B-cell lymphoma
     Dosage: IN 50 ML 0.9% NS OVER 4 HOURS @12.5ML/HOUR-USE 0.2 MICRO FILTER.
     Route: 065
     Dates: start: 20230130
  2. OBINUTUZUMAB [Suspect]
     Active Substance: OBINUTUZUMAB
     Indication: Diffuse large B-cell lymphoma
     Route: 042
     Dates: start: 20230122
  3. GEMCITABINE [Suspect]
     Active Substance: GEMCITABINE
     Indication: Diffuse large B-cell lymphoma
     Dosage: IN 500ML NS OVER 30MIN, DAY 2
     Route: 065
     Dates: start: 20230330
  4. OXALIPLATIN [Suspect]
     Active Substance: OXALIPLATIN
     Indication: Diffuse large B-cell lymphoma
     Dosage: IN 5%D 500ML OVER 2 HOUR, DAY 2
     Route: 065
     Dates: start: 20230330
  5. PHENIRAMINE [Concomitant]
     Active Substance: PHENIRAMINE
     Dosage: AMPOULE
     Route: 042
  6. ONDANSETRON HYDROCHLORIDE [Concomitant]
     Active Substance: ONDANSETRON HYDROCHLORIDE
     Route: 042
  7. ACETAMINOPHEN [Concomitant]
     Active Substance: ACETAMINOPHEN
     Route: 048
  8. DEXA INJECTION [Concomitant]
     Route: 042
  9. AUGMENTIN [Concomitant]
     Active Substance: AMOXICILLIN\CLAVULANATE POTASSIUM
     Route: 048
  10. ZOSYN [Concomitant]
     Active Substance: PIPERACILLIN SODIUM\TAZOBACTAM SODIUM
  11. MEROPENEM [Concomitant]
     Active Substance: MEROPENEM

REACTIONS (4)
  - Febrile neutropenia [Unknown]
  - Urosepsis [Unknown]
  - Pyrexia [Unknown]
  - Drug ineffective [Unknown]

NARRATIVE: CASE EVENT DATE: 20230402
